FAERS Safety Report 14973661 (Version 1)
Quarter: 2018Q2

REPORT INFORMATION
  Report Type: Spontaneous
  Country: CM (occurrence: CM)
  Receive Date: 20180605
  Receipt Date: 20180605
  Transmission Date: 20180711
  Serious: Yes (Other)
  Sender: FDA-Public Use
  Company Number: CM-SA-2018SA144641

PATIENT
  Age: 55 Year
  Sex: Female

DRUGS (2)
  1. AMAREL [Suspect]
     Active Substance: GLIMEPIRIDE
     Indication: TYPE 2 DIABETES MELLITUS
     Dosage: 1 DF, QD
     Route: 048
     Dates: start: 201805, end: 201805
  2. METFORMINE [METFORMIN] [Concomitant]
     Indication: TYPE 2 DIABETES MELLITUS
     Dosage: UNK, HS
     Route: 048
     Dates: end: 201805

REACTIONS (5)
  - Asthenia [Unknown]
  - Chills [Unknown]
  - Speech disorder [Unknown]
  - Hypoglycaemia [Unknown]
  - Altered state of consciousness [Unknown]

NARRATIVE: CASE EVENT DATE: 201805
